FAERS Safety Report 24733479 (Version 1)
Quarter: 2024Q4

REPORT INFORMATION
  Report Type: Spontaneous
  Country: US (occurrence: US)
  Receive Date: 20241213
  Receipt Date: 20241213
  Transmission Date: 20250114
  Serious: Yes (Other)
  Sender: DR REDDYS
  Company Number: US-DRL-USA-LIT/USA/24/0018145

PATIENT
  Age: 75 Year

DRUGS (14)
  1. DOXORUBICIN HYDROCHLORIDE [Suspect]
     Active Substance: DOXORUBICIN HYDROCHLORIDE
     Indication: Epstein-Barr virus associated lymphoproliferative disorder
     Dosage: MINI-CHOP REGIMEN
  2. DOXORUBICIN HYDROCHLORIDE [Suspect]
     Active Substance: DOXORUBICIN HYDROCHLORIDE
     Indication: Cutaneous T-cell lymphoma
  3. SIROLIMUS [Suspect]
     Active Substance: SIROLIMUS
     Indication: Immunosuppressant drug therapy
  4. CYCLOSPORINE [Suspect]
     Active Substance: CYCLOSPORINE
     Indication: Prophylaxis against transplant rejection
  5. CYCLOPHOSPHAMIDE [Suspect]
     Active Substance: CYCLOPHOSPHAMIDE
     Indication: Epstein-Barr virus associated lymphoproliferative disorder
     Dosage: MINI-CHOP REGIMEN
  6. CYCLOPHOSPHAMIDE [Suspect]
     Active Substance: CYCLOPHOSPHAMIDE
     Indication: Cutaneous T-cell lymphoma
  7. VINCRISTINE SULFATE [Suspect]
     Active Substance: VINCRISTINE SULFATE
     Indication: Epstein-Barr virus associated lymphoproliferative disorder
     Dosage: MINI-CHOP REGIMEN
  8. VINCRISTINE SULFATE [Suspect]
     Active Substance: VINCRISTINE SULFATE
     Indication: Cutaneous T-cell lymphoma
  9. PREDNISONE [Suspect]
     Active Substance: PREDNISONE
     Indication: Epstein-Barr virus associated lymphoproliferative disorder
     Dosage: MINI-CHOP REGIMEN
  10. PREDNISONE [Suspect]
     Active Substance: PREDNISONE
     Indication: Cutaneous T-cell lymphoma
  11. BRENTUXIMAB VEDOTIN [Concomitant]
     Active Substance: BRENTUXIMAB VEDOTIN
     Indication: Epstein-Barr virus associated lymphoproliferative disorder
  12. BRENTUXIMAB VEDOTIN [Concomitant]
     Active Substance: BRENTUXIMAB VEDOTIN
     Indication: Cutaneous T-cell lymphoma
  13. RUXOLITINIB [Concomitant]
     Active Substance: RUXOLITINIB
     Indication: Epstein-Barr virus associated lymphoproliferative disorder
  14. RUXOLITINIB [Concomitant]
     Active Substance: RUXOLITINIB
     Indication: Cutaneous T-cell lymphoma

REACTIONS (6)
  - Epstein-Barr virus associated lymphoproliferative disorder [Unknown]
  - Cutaneous T-cell lymphoma [Unknown]
  - Sepsis [Unknown]
  - Disease progression [Unknown]
  - Drug ineffective [Unknown]
  - Product use in unapproved indication [Unknown]
